FAERS Safety Report 10834494 (Version 1)
Quarter: 2015Q1

REPORT INFORMATION
  Report Type: Report from Study
  Country: US (occurrence: US)
  Receive Date: 20150219
  Receipt Date: 20150219
  Transmission Date: 20150721
  Serious: No
  Sender: FDA-Public Use
  Company Number: US-ABBVIE-14P-163-1213215-00

PATIENT
  Age: 17 Year
  Sex: Female
  Weight: 59.02 kg

DRUGS (3)
  1. HUMIRA [Suspect]
     Active Substance: ADALIMUMAB
     Dates: start: 201312
  2. HUMIRA [Suspect]
     Active Substance: ADALIMUMAB
     Indication: JUVENILE IDIOPATHIC ARTHRITIS
     Dates: end: 201312
  3. NAPROXEN. [Concomitant]
     Active Substance: NAPROXEN
     Indication: JUVENILE IDIOPATHIC ARTHRITIS

REACTIONS (1)
  - Juvenile idiopathic arthritis [Recovered/Resolved]

NARRATIVE: CASE EVENT DATE: 201312
